FAERS Safety Report 9408924 (Version 1)
Quarter: 2013Q3

REPORT INFORMATION
  Report Type: Spontaneous
  Country: DE (occurrence: DE)
  Receive Date: 20130719
  Receipt Date: 20130719
  Transmission Date: 20140515
  Serious: Yes (Other)
  Sender: FDA-Public Use
  Company Number: DE-BRISTOL-MYERS SQUIBB COMPANY-19110501

PATIENT
  Age: 75 Year
  Sex: Female

DRUGS (3)
  1. ELIQUIS [Suspect]
     Dosage: TABS
     Dates: start: 20130328
  2. ESOMEPRAZOLE [Concomitant]
  3. ATACAND [Concomitant]

REACTIONS (1)
  - Glaucoma [Unknown]
